FAERS Safety Report 7971112-0 (Version None)
Quarter: 2011Q4

REPORT INFORMATION
  Report Type: 
  Country: None (occurrence: None)
  Receive Date: 20111212
  Receipt Date: 20111212
  Transmission Date: 20120403
  Serious: Yes (Other)
  Sender: FDA-Public Use
  Company Number: None

PATIENT
  Age: 46 Year
  Sex: Female
  Weight: 68.038 kg

DRUGS (1)
  1. PROVIGIL [Suspect]
     Indication: NARCOLEPSY
     Dosage: 1/2 TABLET
     Route: 048
     Dates: start: 20100807, end: 20100812

REACTIONS (5)
  - AMNESIA [None]
  - CONFUSIONAL STATE [None]
  - READING DISORDER [None]
  - HEADACHE [None]
  - SPEECH DISORDER [None]
